FAERS Safety Report 15895116 (Version 1)
Quarter: 2019Q1

REPORT INFORMATION
  Report Type: Spontaneous
  Country: US (occurrence: US)
  Receive Date: 20190131
  Receipt Date: 20190131
  Transmission Date: 20190417
  Serious: Yes (Death)
  Sender: FDA-Public Use
  Company Number: None

PATIENT
  Age: 62 Year
  Sex: Male

DRUGS (5)
  1. VOTRIENT [Suspect]
     Active Substance: PAZOPANIB HYDROCHLORIDE
     Indication: SOFT TISSUE SARCOMA
     Route: 048
  2. ADVAIR DISKU AER, FLUTICASONE [Concomitant]
  3. ELIQUIS, TAMSULOSIN, [Concomitant]
  4. GABAPENTIN, FUROSEMIDE [Concomitant]
  5. DUTASTERIDE, PRAVASTATIN, [Concomitant]

REACTIONS (1)
  - Death [None]

NARRATIVE: CASE EVENT DATE: 20190124
